FAERS Safety Report 8920233 (Version 2)
Quarter: 2012Q4

REPORT INFORMATION
  Report Type: 
  Country: FR (occurrence: FR)
  Receive Date: 20121122
  Receipt Date: 20121211
  Transmission Date: 20130627
  Serious: No
  Sender: FDA-Public Use
  Company Number: FR-ROCHE-1149561

PATIENT
  Age: 60 Year
  Sex: Male
  Weight: 82 kg

DRUGS (5)
  1. ZELBORAF [Suspect]
     Indication: METASTATIC MALIGNANT MELANOMA
     Route: 048
     Dates: start: 20120622
  2. NEURONTIN [Concomitant]
     Indication: MENINGIOMA
     Route: 048
     Dates: start: 201204
  3. XATRAL [Concomitant]
     Indication: PROSTATIC ADENOMA
     Route: 065
  4. CHIBRO-PROSCAR [Concomitant]
     Indication: PROSTATIC ADENOMA
     Route: 048
  5. DEROXAT [Concomitant]
     Indication: DEPRESSION
     Route: 048
     Dates: start: 201112

REACTIONS (1)
  - Supraventricular tachycardia [Recovered/Resolved]
